FAERS Safety Report 20246120 (Version 4)
Quarter: 2024Q2

REPORT INFORMATION
  Report Type: Spontaneous
  Country: IE (occurrence: IE)
  Receive Date: 20211229
  Receipt Date: 20240613
  Transmission Date: 20240716
  Serious: Yes (Life-Threatening, Hospitalization, Other)
  Sender: FDA-Public Use
  Company Number: IE-GSKCCFEMEA-Case-01365530_AE-52376

PATIENT
  Age: 42 Year
  Sex: Male

DRUGS (25)
  1. METFORMIN [Suspect]
     Active Substance: METFORMIN HYDROCHLORIDE
     Indication: Type 2 diabetes mellitus
     Dosage: 1000 MILLIGRAM, QD (500 MG, BID)
     Route: 065
  2. FLUTICASONE FUROATE [Suspect]
     Active Substance: FLUTICASONE FUROATE
     Indication: Analgesic therapy
     Dosage: 27.5 MICROGRAM (10 DS)
     Route: 045
     Dates: start: 20201125, end: 20210816
  3. FLUTICASONE FUROATE [Suspect]
     Active Substance: FLUTICASONE FUROATE
     Dosage: 27.5 MICROGRAM
     Route: 045
     Dates: start: 20210816
  4. FLUTICASONE FUROATE [Suspect]
     Active Substance: FLUTICASONE FUROATE
     Dosage: 27.5 MICROGRAM
     Route: 045
     Dates: start: 20210630
  5. FLUTICASONE FUROATE [Suspect]
     Active Substance: FLUTICASONE FUROATE
     Dosage: 27.5 MICROGRAM
     Route: 045
     Dates: start: 20210604
  6. FLUTICASONE FUROATE [Suspect]
     Active Substance: FLUTICASONE FUROATE
     Dosage: 27.5 MICROGRAM
     Route: 045
     Dates: start: 20210428, end: 20210816
  7. FLUTICASONE FUROATE [Suspect]
     Active Substance: FLUTICASONE FUROATE
     Dosage: 27.5 MICROGRAM
     Route: 045
     Dates: start: 20210311
  8. FLUTICASONE FUROATE [Suspect]
     Active Substance: FLUTICASONE FUROATE
     Dosage: 27.5 MICROGRAM
     Route: 045
     Dates: start: 20210126
  9. PREDNISOLONE [Suspect]
     Active Substance: PREDNISOLONE
     Indication: Product used for unknown indication
     Dosage: 30 MILLIGRAM, QD (TAKE 6 TABLETS AS A SINGLE DOSE IN THE MORNING FOR 5 DAYS^ 6 DF, QD (IN MORNING))
     Route: 048
     Dates: start: 20210428
  10. ACETAMINOPHEN\CAFFEINE\CODEINE PHOSPHATE [Suspect]
     Active Substance: ACETAMINOPHEN\CAFFEINE\CODEINE PHOSPHATE
     Indication: Analgesic therapy
     Dosage: UNK, Q8H (TAKE TWO THREE TIMES A DAY WHEN REQUIRED)
     Route: 048
     Dates: start: 20210828
  11. ACETAMINOPHEN\CAFFEINE\CODEINE PHOSPHATE [Suspect]
     Active Substance: ACETAMINOPHEN\CAFFEINE\CODEINE PHOSPHATE
     Dosage: UNK, Q8H (TAKE TWO THREE TIMES A DAY WHEN REQUIRED)
     Route: 048
     Dates: start: 20210311
  12. ACETAMINOPHEN\CAFFEINE\CODEINE PHOSPHATE [Suspect]
     Active Substance: ACETAMINOPHEN\CAFFEINE\CODEINE PHOSPHATE
     Dosage: UNK, Q8H (TAKE TWO THREE TIMES A DAY WHEN REQUIRED)
     Route: 048
     Dates: start: 20211001
  13. ACETAMINOPHEN\CAFFEINE\CODEINE PHOSPHATE [Suspect]
     Active Substance: ACETAMINOPHEN\CAFFEINE\CODEINE PHOSPHATE
     Dosage: UNK, Q8H (TAKE TWO THREE TIMES A DAY WHEN REQUIRED)
     Route: 048
     Dates: start: 20210706
  14. ACETAMINOPHEN\CAFFEINE\CODEINE PHOSPHATE [Suspect]
     Active Substance: ACETAMINOPHEN\CAFFEINE\CODEINE PHOSPHATE
     Dosage: UNK, Q8H (TAKE TWO THREE TIMES A DAY WHEN REQUIRED)
     Route: 048
     Dates: start: 20210408
  15. ACETAMINOPHEN\CAFFEINE\CODEINE PHOSPHATE [Suspect]
     Active Substance: ACETAMINOPHEN\CAFFEINE\CODEINE PHOSPHATE
     Dosage: UNK, Q8H (TAKE TWO THREE TIMES A DAY WHEN REQUIRED)
     Route: 048
     Dates: start: 20201125
  16. ACETAMINOPHEN\CAFFEINE\CODEINE PHOSPHATE [Suspect]
     Active Substance: ACETAMINOPHEN\CAFFEINE\CODEINE PHOSPHATE
     Dosage: UNK, Q8H (TAKE TWO THREE TIMES A DAY WHEN REQUIRED)
     Route: 048
     Dates: start: 20210217
  17. DIFENE [Concomitant]
     Active Substance: DICLOFENAC SODIUM
     Indication: Product used for unknown indication
     Dosage: UNK, BID
     Route: 065
  18. AMITRIPTYLINE [Concomitant]
     Active Substance: AMITRIPTYLINE
     Indication: Product used for unknown indication
     Dosage: 10 MILLIGRAM, QD
     Route: 065
  19. DEXKETOPROFEN TROMETAMOL [Concomitant]
     Active Substance: DEXKETOPROFEN TROMETAMOL
     Indication: Product used for unknown indication
     Dosage: 25 MILLIGRAM, Q8H (25 MG, TID, FOR 5 DAYS)
     Route: 065
  20. Astilin [Concomitant]
     Indication: Product used for unknown indication
     Dosage: 100 MILLIGRAM, QD
     Route: 065
  21. DOXYCYCLINE PINEWOOD [Concomitant]
     Indication: Product used for unknown indication
     Dosage: 100 MILLIGRAM, QD
     Route: 065
  22. DOXYCYCLINE PINEWOOD [Concomitant]
     Dosage: 100 MILLIGRAM, BID
     Route: 065
  23. Anxicalm [Concomitant]
     Indication: Product used for unknown indication
     Dosage: 2 MILLIGRAM, PRN  (2 MG,AS NEEDED,TAKE ONE DAILY
     Route: 065
  24. DICLOFENAC SODIUM [Concomitant]
     Active Substance: DICLOFENAC\DICLOFENAC SODIUM
     Indication: Product used for unknown indication
     Dosage: 75 MILLIGRAM, BID (PRN)
     Route: 065
  25. DIAZEPAM [Concomitant]
     Active Substance: DIAZEPAM
     Indication: Product used for unknown indication
     Dosage: UNK,AS NEEDED,TAKE ONE DAILY
     Route: 065

REACTIONS (11)
  - Type 2 diabetes mellitus [Not Recovered/Not Resolved]
  - Paraesthesia [Unknown]
  - Polydipsia [Unknown]
  - Food craving [Unknown]
  - Hyperhidrosis [Unknown]
  - Fungal infection [Unknown]
  - Feeling hot [Unknown]
  - Blood glucose increased [Unknown]
  - Malaise [Unknown]
  - Nausea [Unknown]
  - Drug ineffective [Unknown]

NARRATIVE: CASE EVENT DATE: 20210801
